FAERS Safety Report 8826152 (Version 1)
Quarter: 2012Q4

REPORT INFORMATION
  Report Type: 
  Country: TW (occurrence: TW)
  Receive Date: 20121005
  Receipt Date: 20121005
  Transmission Date: 20130627
  Serious: Yes (Other)
  Sender: FDA-Public Use
  Company Number: TW-B.I. PHARMACEUTICALS,INC./RIDGEFIELD-2012-BP-23581YA

PATIENT
  Age: 54 Year
  Sex: Male

DRUGS (1)
  1. TAMSULOSINA [Suspect]
     Indication: BENIGN PROSTATIC HYPERPLASIA
     Dosage: 0.2 mg
     Route: 048
     Dates: start: 20120914, end: 20120921

REACTIONS (3)
  - Dizziness [Unknown]
  - Fall [Unknown]
  - Jaw fracture [Unknown]
